FAERS Safety Report 6583693-2 (Version None)
Quarter: 2010Q1

REPORT INFORMATION
  Report Type: 
  Country: None (occurrence: None)
  Receive Date: 20100212
  Receipt Date: 20100212
  Transmission Date: 20100710
  Serious: Yes (Hospitalization)
  Sender: FDA-Public Use
  Company Number: None

PATIENT
  Age: 64 Year
  Sex: Male
  Weight: 92.5338 kg

DRUGS (4)
  1. METHOTREXATE [Suspect]
     Indication: BLADDER CANCER
     Dosage: ONCE EVERY 2 WEEKS-
     Dates: start: 20100105
  2. VINBLASTINE 3MG/M2 [Suspect]
     Indication: BLADDER CANCER
     Dosage: ONCE EVERY 2 WEEKS-
     Dates: start: 20100105
  3. DOXORUBICIN 30MG/M2 [Suspect]
     Dosage: FOLLOWED BY NEULASTA
     Dates: start: 20100106
  4. CISPLATIN [Suspect]
     Dosage: FOLLOWED BY NEULASTA
     Dates: start: 20100106

REACTIONS (7)
  - ANAEMIA [None]
  - DEHYDRATION [None]
  - PANCYTOPENIA [None]
  - PLEURAL EFFUSION [None]
  - PNEUMONIA [None]
  - RENAL FAILURE ACUTE [None]
  - SEPSIS [None]
